FAERS Safety Report 6073063-8 (Version None)
Quarter: 2009Q1

REPORT INFORMATION
  Report Type: 
  Country: None (occurrence: None)
  Receive Date: 20090209
  Receipt Date: 20090209
  Transmission Date: 20090719
  Serious: Yes (Life-Threatening, Other)
  Sender: FDA-Public Use
  Company Number: None

PATIENT
  Age: 70 Year
  Sex: Male
  Weight: 124.7392 kg

DRUGS (1)
  1. ATROPINE [Suspect]
     Indication: CARDIAC STRESS TEST
     Dates: start: 20090205, end: 20090206

REACTIONS (8)
  - ASTHENIA [None]
  - CONSTIPATION [None]
  - DRY MOUTH [None]
  - DYSURIA [None]
  - FLUSHING [None]
  - HEADACHE [None]
  - HYPOPHAGIA [None]
  - URINARY HESITATION [None]
